FAERS Safety Report 9934848 (Version 1)
Quarter: 2014Q1

REPORT INFORMATION
  Report Type: Report from Study
  Country: US (occurrence: US)
  Receive Date: 20140228
  Receipt Date: 20140228
  Transmission Date: 20141002
  Serious: Yes (Hospitalization)
  Sender: FDA-Public Use
  Company Number: US-BAYER-2014-030764

PATIENT
  Age: 54 Year
  Sex: Female

DRUGS (1)
  1. NEXAVAR [Suspect]
     Indication: HEPATIC CANCER
     Dosage: DAILY DOSE 800 MG
     Route: 048

REACTIONS (4)
  - Fatigue [None]
  - Skin lesion [None]
  - Swelling face [None]
  - Ear swelling [None]
